FAERS Safety Report 16236493 (Version 2)
Quarter: 2019Q2

REPORT INFORMATION
  Report Type: Spontaneous
  Country: DE (occurrence: DE)
  Receive Date: 20190425
  Receipt Date: 20190518
  Transmission Date: 20190711
  Serious: Yes (Other)
  Sender: FDA-Public Use
  Company Number: DE-AUROBINDO-AUR-APL-2019-022111

PATIENT

DRUGS (4)
  1. BISOPROLOL [Concomitant]
     Active Substance: BISOPROLOL
     Indication: HYPERTENSION
     Dosage: 2.5 MILLIGRAM, ONCE A DAY, DAAILY DOSE: 2.5 MG MILLGRAM(S) EVERY DAYS
     Route: 048
  2. CEFUROXIME. [Suspect]
     Active Substance: CEFUROXIME
     Indication: INFECTION
     Dosage: 2 DOSAGE FORM, ONCE A DAY,DAILY DOSE: 2 DF DOSAGE FORM EVERY DAYS
     Route: 048
  3. UNACID [Concomitant]
     Indication: INFECTION
     Dosage: UNK
     Route: 048
  4. ASPIRIN. [Suspect]
     Active Substance: ASPIRIN
     Indication: CARDIOVASCULAR EVENT PROPHYLAXIS
     Dosage: 100 MILLIGRAM, ONCE A DAY,DAILY DOSE: 100 MG MILLGRAM(S) EVERY DAYS
     Route: 048

REACTIONS (3)
  - Drug interaction [Unknown]
  - Abdominal wall haemorrhage [Recovered/Resolved]
  - Abdominal wall haematoma [Recovered/Resolved]

NARRATIVE: CASE EVENT DATE: 20190320
